FAERS Safety Report 4598399-9 (Version None)
Quarter: 2005Q1

REPORT INFORMATION
  Report Type: 
  Country: None (occurrence: None)
  Receive Date: 20050304
  Receipt Date: 20050218
  Transmission Date: 20050727
  Serious: Yes (Hospitalization)
  Sender: FDA-Public Use
  Company Number: DE-JNJFOC-20050205103

PATIENT
  Age: 72 Year
  Sex: Female

DRUGS (5)
  1. RISPERDAL [Suspect]
  2. RISPERDAL [Suspect]
     Indication: DRUG USE FOR UNKNOWN INDICATION
  3. DYTIDE [Interacting]
  4. DYTIDE [Interacting]
     Indication: DRUG USE FOR UNKNOWN INDICATION
     Dosage: 1/2 TBL
  5. BAYOTENSIN [Interacting]
     Indication: DRUG USE FOR UNKNOWN INDICATION
     Dosage: 1/2 TBL

REACTIONS (3)
  - DRUG INTERACTION [None]
  - LEUKOPENIA [None]
  - THROMBOCYTOPENIA [None]
